FAERS Safety Report 4348301-X (Version None)
Quarter: 2004Q2

REPORT INFORMATION
  Report Type: 
  Country: None (occurrence: None)
  Receive Date: 20040422
  Receipt Date: 20040407
  Transmission Date: 20050107
  Serious: Yes (Hospitalization)
  Sender: FDA-Public Use
  Company Number: 236429

PATIENT
  Age: 19 Year
  Sex: Female
  Weight: 44 kg

DRUGS (8)
  1. HUMULIN R PEN [Suspect]
     Indication: DIABETES MELLITUS INSULIN-DEPENDENT
     Dosage: 53 IU, QD, SUBCUTANEOUS
     Route: 058
     Dates: start: 20030421
  2. HUMULIN N [Suspect]
     Indication: DIABETES MELLITUS INSULIN-DEPENDENT
     Dosage: 16 IU, QD, SUBCUTANEOUS
     Route: 058
     Dates: start: 20030421
  3. THYRADIN (THYROID) [Concomitant]
  4. PREMARIN /NEZ/ [Concomitant]
  5. NORLUTEN [Concomitant]
  6. ENALAPRIL MALEATE [Concomitant]
  7. SAWACILLIN (AMOXICILLIN TRIHYDRATE) [Concomitant]
  8. TRAVEGYL /AUS/ (CLEMASTINE) [Concomitant]

REACTIONS (11)
  - ABDOMINAL PAIN UPPER [None]
  - ALANINE AMINOTRANSFERASE INCREASED [None]
  - ASPARTATE AMINOTRANSFERASE INCREASED [None]
  - BLOOD GLUCOSE INCREASED [None]
  - BLOOD LACTATE DEHYDROGENASE INCREASED [None]
  - BODY TEMPERATURE INCREASED [None]
  - GAMMA-GLUTAMYLTRANSFERASE INCREASED [None]
  - JAUNDICE [None]
  - LIVER DISORDER [None]
  - RASH [None]
  - SLUGGISHNESS [None]
